FAERS Safety Report 22946258 (Version 4)
Quarter: 2024Q1

REPORT INFORMATION
  Report Type: Spontaneous
  Country: US (occurrence: US)
  Receive Date: 20230915
  Receipt Date: 20240323
  Transmission Date: 20240410
  Serious: No
  Sender: FDA-Public Use
  Company Number: US-SA-SAC20230911000124

PATIENT
  Age: 67 Year
  Sex: Female

DRUGS (3)
  1. DUPIXENT [Suspect]
     Active Substance: DUPILUMAB
     Indication: Asthma
     Dosage: 600 MG, 1X
     Route: 058
     Dates: start: 20230629, end: 20230629
  2. DUPIXENT [Suspect]
     Active Substance: DUPILUMAB
     Indication: Neurodermatitis
     Dosage: 300 MG, QOW
     Route: 058
     Dates: start: 20230713, end: 20240104
  3. DUPIXENT [Suspect]
     Active Substance: DUPILUMAB
     Indication: Dermatitis atopic
     Dosage: 300 MG, QOW
     Route: 058
     Dates: start: 2024

REACTIONS (7)
  - Symptom recurrence [Recovered/Resolved]
  - Rash erythematous [Unknown]
  - Skin burning sensation [Unknown]
  - Neurodermatitis [Unknown]
  - Pruritus [Not Recovered/Not Resolved]
  - Dry skin [Unknown]
  - Skin swelling [Unknown]

NARRATIVE: CASE EVENT DATE: 20230101
